FAERS Safety Report 8431732-6 (Version None)
Quarter: 2012Q2

REPORT INFORMATION
  Report Type: 
  Country: None (occurrence: None)
  Receive Date: 20120613
  Receipt Date: 20120605
  Transmission Date: 20120825
  Serious: Yes (Hospitalization, Other)
  Sender: FDA-Public Use
  Company Number: US-BAYER-2012-057037

PATIENT
  Age: 42 Year
  Sex: Female

DRUGS (7)
  1. IBUPROFEN [Concomitant]
     Indication: PYREXIA
     Dosage: 600 MG,EVERY 6 HOURS
  2. PROZAC [Concomitant]
  3. FLUOXETINE HYDROCHLORIDE [Concomitant]
     Dosage: 20 MG, UNK
     Route: 048
     Dates: start: 20090328
  4. SYNTHROID [Concomitant]
     Dosage: .015 MG, UNK
     Route: 048
     Dates: start: 20090505
  5. PERCOCET [Concomitant]
     Indication: PAIN
  6. YAZ [Suspect]
     Indication: DYSMENORRHOEA
  7. ZYRTEC [Concomitant]
     Indication: URTICARIA
     Dosage: 10 MG, UNK
     Route: 048

REACTIONS (2)
  - DEEP VEIN THROMBOSIS [None]
  - PULMONARY EMBOLISM [None]
